FAERS Safety Report 19464443 (Version 3)
Quarter: 2021Q3

REPORT INFORMATION
  Report Type: Spontaneous
  Country: US (occurrence: US)
  Receive Date: 20210626
  Receipt Date: 20210708
  Transmission Date: 20211014
  Serious: Yes (Life-Threatening, Hospitalization, Other)
  Sender: FDA-Public Use
  Company Number: US-AUROBINDO-AUR-APL-2021-026065

PATIENT
  Age: 21 Year
  Sex: Female

DRUGS (4)
  1. DIPHENHYDRAMINE. [Suspect]
     Active Substance: DIPHENHYDRAMINE
     Indication: NASOPHARYNGITIS
     Dosage: UNK
     Route: 065
  2. AMITRIPTYLINE [Suspect]
     Active Substance: AMITRIPTYLINE
     Indication: SUICIDE ATTEMPT
     Dosage: UNK
     Route: 065
  3. FENTANYL. [Suspect]
     Active Substance: FENTANYL
     Indication: PRODUCT USED FOR UNKNOWN INDICATION
     Dosage: 60 MICROGRAM, FOUR TIMES/DAY (THREE DOSES OF IV FENTANYL OVER 6 HOURS (50?G EACH))
     Route: 042
  4. CODEINE [Suspect]
     Active Substance: CODEINE
     Indication: NASOPHARYNGITIS
     Dosage: UNK
     Route: 065

REACTIONS (10)
  - Fall [Unknown]
  - Epistaxis [Unknown]
  - Unresponsive to stimuli [Recovering/Resolving]
  - Encephalopathy [Recovering/Resolving]
  - Hypertension [Unknown]
  - Contusion [Unknown]
  - Intentional overdose [Unknown]
  - Tachycardia [Unknown]
  - Miosis [Unknown]
  - Anterograde amnesia [Unknown]
